FAERS Safety Report 25329664 (Version 3)
Quarter: 2025Q3

REPORT INFORMATION
  Report Type: Report from Study
  Country: US (occurrence: US)
  Receive Date: 20250519
  Receipt Date: 20250720
  Transmission Date: 20251021
  Serious: Yes (Hospitalization)
  Sender: CSL BEHRING
  Company Number: US-BEH-2025204913

PATIENT
  Age: 71 Year
  Sex: Male
  Weight: 90.703 kg

DRUGS (1)
  1. ZEMAIRA [Suspect]
     Active Substance: .ALPHA.1-PROTEINASE INHIBITOR HUMAN
     Indication: Alpha-1 antitrypsin deficiency
     Dosage: STRENGTH: 60, QW
     Route: 042

REACTIONS (7)
  - Hip fracture [Not Recovered/Not Resolved]
  - Incontinence [Not Recovered/Not Resolved]
  - Hip fracture [Unknown]
  - Tremor [Not Recovered/Not Resolved]
  - Fall [Unknown]
  - Fall [Unknown]
  - Product dose omission in error [Unknown]

NARRATIVE: CASE EVENT DATE: 20250314
